FAERS Safety Report 9084830 (Version 5)
Quarter: 2013Q2

REPORT INFORMATION
  Report Type: Report from Study
  Country: MX (occurrence: MX)
  Receive Date: 20130218
  Receipt Date: 20130422
  Transmission Date: 20140414
  Serious: Yes (Other)
  Sender: FDA-Public Use
  Company Number: PHHY2012MX112425

PATIENT
  Age: 51 Year
  Sex: Female
  Weight: 67 kg

DRUGS (21)
  1. EXFORGE HCT [Suspect]
     Indication: HYPERTENSION
     Dosage: (320/10/25 MG), UKN
     Route: 048
     Dates: start: 201210
  2. EXFORGE HCT [Suspect]
     Dosage: 1 DF (160 MG VALS /5 MG AMLO /12.5MG HCTZ), DAILY
     Dates: start: 201212
  3. EXFORGE HCT [Suspect]
     Dosage: 1 DF (320 MG VALS/10 MG AMLO/25MGHCTZ), DAILY
     Route: 048
     Dates: start: 201302
  4. EXFORGE HCT [Suspect]
     Dosage: 2/3 DF (320 MG VALS/10 MG AMLO/25MGHCTZ), DAILY
     Route: 048
     Dates: start: 201302
  5. EXFORGE HCT [Suspect]
     Dosage: 1.5 DF (160MG VALS/5 MG AMLO/12.5 MG HCTZ), UNK
  6. EXFORGE HCT [Suspect]
     Dosage: 1 DF (160/5/12.5 MG), DAILY
     Route: 048
  7. CO-DIOVAN [Suspect]
     Indication: HYPERTENSION
     Dosage: 1 DF
  8. METHOTREXATE [Concomitant]
     Indication: RHEUMATOID ARTHRITIS
     Dosage: 4 UKN, QW
     Route: 048
     Dates: start: 2000
  9. FLUOXETINE [Concomitant]
     Indication: SEDATIVE THERAPY
     Dosage: 1 UKN, DAILY
     Route: 048
     Dates: start: 2008
  10. FLUOXETINE [Concomitant]
     Indication: DEPRESSION
  11. FLUOXETINE [Concomitant]
     Indication: ANXIETY
  12. CHLOROQUINE [Concomitant]
     Indication: RHEUMATOID ARTHRITIS
     Dosage: 1 UKN, DAILY
     Dates: start: 2000
  13. FOLIC ACID [Concomitant]
     Indication: ARTHRITIS
     Dosage: 1 UKN, DAILY
     Route: 048
     Dates: start: 2000
  14. RANITIDINE [Concomitant]
     Indication: ABDOMINAL DISCOMFORT
     Dosage: 1 DF, DAILY
     Dates: start: 2002
  15. RANITIDINE [Concomitant]
     Indication: GASTRITIS
  16. ACETAMINOPHEN [Concomitant]
     Indication: PAIN
     Dosage: 1 DF, PRN
     Dates: start: 2012
  17. DIPYRONE [Concomitant]
     Indication: MIGRAINE
  18. PARACETAMOL [Concomitant]
     Indication: ARTHRALGIA
     Dosage: 3 DF, DAILY
     Dates: start: 1995
  19. NIFEDIPINE [Concomitant]
     Indication: HYPERTENSION
     Dosage: 2 DF, DAILY
     Dates: start: 20130312, end: 20130313
  20. IBUPROFEN [Concomitant]
  21. CELEBREX [Concomitant]
     Indication: RHEUMATOID ARTHRITIS
     Dosage: 1 UKN, DAILY
     Dates: start: 2011

REACTIONS (16)
  - Drug dependence [Unknown]
  - Suicidal behaviour [Unknown]
  - Blood pressure increased [Not Recovered/Not Resolved]
  - Depression [Not Recovered/Not Resolved]
  - Headache [Not Recovered/Not Resolved]
  - Gastrooesophageal reflux disease [Not Recovered/Not Resolved]
  - Migraine [Not Recovered/Not Resolved]
  - Cardiomegaly [Unknown]
  - Influenza [Not Recovered/Not Resolved]
  - Wrong technique in drug usage process [Unknown]
  - Weight increased [Not Recovered/Not Resolved]
  - Fatigue [Not Recovered/Not Resolved]
  - Blood pressure decreased [Not Recovered/Not Resolved]
  - Insomnia [Not Recovered/Not Resolved]
  - Anxiety [Unknown]
  - Local swelling [Not Recovered/Not Resolved]
